FAERS Safety Report 4624544-2 (Version None)
Quarter: 2005Q1

REPORT INFORMATION
  Report Type: 
  Country: None (occurrence: None)
  Receive Date: 20050107
  Receipt Date: 20040920
  Transmission Date: 20050727
  Serious: No
  Sender: FDA-Public Use
  Company Number: 234707K04USA

PATIENT
  Age: 46 Year
  Sex: Male

DRUGS (5)
  1. REBIF [Suspect]
     Indication: MULTIPLE SCLEROSIS
     Dosage: 44 MCG, 3 IN 1 WEEKS, SUBCUTANEOUS
     Route: 058
     Dates: start: 20020530
  2. NEURONTIN [Concomitant]
  3. HYDROCODONE BITARTRATE [Concomitant]
  4. ZOCOR [Concomitant]
  5. PREVACID [Concomitant]

REACTIONS (6)
  - INJECTION SITE ERYTHEMA [None]
  - INJECTION SITE PAIN [None]
  - INJECTION SITE REACTION [None]
  - LEUKOPENIA [None]
  - PHLEBITIS [None]
  - WHITE BLOOD CELL COUNT DECREASED [None]
